FAERS Safety Report 4540192-7 (Version None)
Quarter: 2004Q4

REPORT INFORMATION
  Report Type: 
  Country: None (occurrence: None)
  Receive Date: 20041222
  Receipt Date: 20041201
  Transmission Date: 20050328
  Serious: Yes (Death, Hospitalization, Other)
  Sender: FDA-Public Use
  Company Number: GBS041115945

PATIENT
  Age: 22 Year
  Sex: Male
  Weight: 78 kg

DRUGS (1)
  1. XIGRIS [Suspect]
     Indication: SEPSIS
     Dosage: 24 UG/KG/HR
     Route: 042
     Dates: start: 20041110, end: 20041111

REACTIONS (9)
  - BRAIN HERNIATION [None]
  - CARDIAC ARREST [None]
  - CEREBRAL HAEMORRHAGE [None]
  - CONDITION AGGRAVATED [None]
  - HAEMODIALYSIS [None]
  - MULTI-ORGAN FAILURE [None]
  - PUPIL FIXED [None]
  - SUBARACHNOID HAEMORRHAGE [None]
  - THROMBOCYTOPENIA [None]
